FAERS Safety Report 17307966 (Version 1)
Quarter: 2020Q1

REPORT INFORMATION
  Report Type: Spontaneous
  Country: US (occurrence: US)
  Receive Date: 20200123
  Receipt Date: 20200123
  Transmission Date: 20200409
  Serious: Yes (Other)
  Sender: FDA-Public Use
  Company Number: US-AMGEN-USASP2020006661

PATIENT
  Age: 67 Year
  Sex: Female
  Weight: 53.06 kg

DRUGS (2)
  1. PROLIA [Suspect]
     Active Substance: DENOSUMAB
     Indication: OSTEOPOROSIS POSTMENOPAUSAL
     Dosage: 60 MILLIGRAM
     Route: 065
     Dates: start: 201812
  2. CALCIUM AND VITAMIN D [Concomitant]
     Active Substance: CALCIUM\VITAMIN D

REACTIONS (14)
  - Rash [Recovering/Resolving]
  - Vitamin D increased [Unknown]
  - Localised infection [Recovering/Resolving]
  - Constipation [Recovering/Resolving]
  - Rectal abscess [Recovering/Resolving]
  - Noninfective gingivitis [Recovering/Resolving]
  - Inflammation [Recovering/Resolving]
  - Bone pain [Recovered/Resolved]
  - Endocarditis [Recovering/Resolving]
  - Pain in extremity [Recovering/Resolving]
  - Head discomfort [Recovered/Resolved]
  - Ovarian disorder [Recovering/Resolving]
  - Gastrooesophageal reflux disease [Recovering/Resolving]
  - Arthralgia [Recovering/Resolving]

NARRATIVE: CASE EVENT DATE: 2019
